FAERS Safety Report 9264355 (Version 1)
Quarter: 2013Q2

REPORT INFORMATION
  Report Type: Spontaneous
  Country: US (occurrence: US)
  Receive Date: 20130430
  Receipt Date: 20130430
  Transmission Date: 20140414
  Serious: Yes (Death, Life-Threatening)
  Sender: FDA-Public Use
  Company Number: US-BAXTER-2013BAX015649

PATIENT
  Age: 61 Year
  Sex: Male
  Weight: 84.17 kg

DRUGS (18)
  1. 0.9% SODIUM CHLORIDE INJECTION [Suspect]
     Indication: PERCUTANEOUS CORONARY INTERVENTION
     Route: 042
     Dates: start: 20120118
  2. CANGRELOR [Suspect]
     Indication: PERCUTANEOUS CORONARY INTERVENTION
     Dosage: BOLUS
     Route: 042
     Dates: start: 20120119, end: 20120119
  3. CANGRELOR [Suspect]
     Route: 042
  4. IOPAMIDOL (ISOVUE 370) [Suspect]
     Indication: CATHETERISATION CARDIAC
     Route: 042
     Dates: start: 20120119, end: 20120119
  5. ASPRIN [Concomitant]
     Indication: PRODUCT USED FOR UNKNOWN INDICATION
  6. CLOPIDOGREL [Concomitant]
     Indication: PRODUCT USED FOR UNKNOWN INDICATION
  7. LASIX [Concomitant]
     Indication: PRODUCT USED FOR UNKNOWN INDICATION
     Dates: start: 20100824
  8. PRILOSEC [Concomitant]
     Indication: PRODUCT USED FOR UNKNOWN INDICATION
     Dates: start: 20100824
  9. DILTIAZEM HYDROCHLORIDE [Concomitant]
     Indication: PRODUCT USED FOR UNKNOWN INDICATION
     Dates: start: 20100604
  10. ATIVAN [Concomitant]
     Indication: PRODUCT USED FOR UNKNOWN INDICATION
     Dates: start: 20120101
  11. METHADONE [Concomitant]
     Indication: PRODUCT USED FOR UNKNOWN INDICATION
     Dates: start: 20100824
  12. DIGOXIN [Concomitant]
     Indication: PRODUCT USED FOR UNKNOWN INDICATION
     Dates: start: 20100602
  13. SPIRONOLACTONE [Concomitant]
     Indication: PRODUCT USED FOR UNKNOWN INDICATION
     Dates: start: 20100602
  14. INSULIN [Concomitant]
     Indication: DIABETES MELLITUS
     Dates: start: 20090101
  15. NPH INSULIN [Concomitant]
     Indication: DIABETES MELLITUS
     Dates: start: 20090101
  16. SYMBICORT [Concomitant]
     Indication: PRODUCT USED FOR UNKNOWN INDICATION
     Dates: start: 20110101
  17. ALBUTEROL [Concomitant]
     Indication: PRODUCT USED FOR UNKNOWN INDICATION
     Dates: start: 20110101
  18. UNFRACTIONATED HEPARIN [Concomitant]
     Indication: PRODUCT USED FOR UNKNOWN INDICATION

REACTIONS (2)
  - Cardiac failure congestive [Fatal]
  - Atrial flutter [Unknown]
